FAERS Safety Report 26006573 (Version 2)
Quarter: 2025Q4

REPORT INFORMATION
  Report Type: Spontaneous
  Country: JP (occurrence: JP)
  Receive Date: 20251106
  Receipt Date: 20251210
  Transmission Date: 20260117
  Serious: No
  Sender: UCB
  Company Number: JP-UCBJ-CD202512726UCBPHAPROD

PATIENT
  Age: 4 Decade

DRUGS (2)
  1. FINTEPLA [Suspect]
     Active Substance: FENFLURAMINE
     Indication: Lennox-Gastaut syndrome
     Dosage: 0.2 MILLIGRAM/KILOGRAM, DAILY
  2. FINTEPLA [Suspect]
     Active Substance: FENFLURAMINE
     Dosage: GRADUALLY INCREASED

REACTIONS (4)
  - Nausea [Recovering/Resolving]
  - Dysphagia [Recovering/Resolving]
  - Therapeutic response decreased [Unknown]
  - Drug ineffective [Unknown]
